FAERS Safety Report 5586410-8 (Version None)
Quarter: 2008Q1

REPORT INFORMATION
  Report Type: 
  Country: None (occurrence: None)
  Receive Date: 20080107
  Receipt Date: 20080107
  Transmission Date: 20080703
  Serious: Yes (Hospitalization)
  Sender: FDA-Public Use
  Company Number: None

PATIENT
  Sex: Male

DRUGS (6)
  1. TAXOTERE [Suspect]
  2. ARANESP [Suspect]
  3. PREDNISONE TAB [Concomitant]
  4. ASPIRIN [Concomitant]
  5. TAXOTERE [Concomitant]
  6. BRACHYTHERAPY-CS 131 [Concomitant]

REACTIONS (5)
  - ALCOHOL USE [None]
  - ANAEMIA [None]
  - HAEMATOCHEZIA [None]
  - RECTAL ULCER [None]
  - TOBACCO USER [None]
